FAERS Safety Report 25214570 (Version 3)
Quarter: 2025Q2

REPORT INFORMATION
  Report Type: Report from Study
  Country: IT (occurrence: IT)
  Receive Date: 20250418
  Receipt Date: 20250425
  Transmission Date: 20250716
  Serious: Yes (Disabling)
  Sender: SERVIER
  Company Number: IT-SERVIER-S25004675

PATIENT

DRUGS (4)
  1. VORASIDENIB [Suspect]
     Active Substance: VORASIDENIB
     Indication: Glioma
     Dosage: 40 MG, QD
     Route: 048
     Dates: start: 20241216
  2. KEPPRA [Concomitant]
     Active Substance: LEVETIRACETAM
     Indication: Astrocytoma
     Dosage: 500 MG, BID
     Route: 065
     Dates: start: 2024
  3. FYCOMPA [Concomitant]
     Active Substance: PERAMPANEL
     Indication: Astrocytoma
     Route: 048
  4. DEXAMETHASONE [Concomitant]
     Active Substance: DEXAMETHASONE
     Indication: Astrocytoma
     Route: 048

REACTIONS (2)
  - Neurotoxicity [Not Recovered/Not Resolved]
  - Visual field defect [Not Recovered/Not Resolved]

NARRATIVE: CASE EVENT DATE: 20250130
